FAERS Safety Report 4549939-7 (Version None)
Quarter: 2005Q1

REPORT INFORMATION
  Report Type: 
  Country: None (occurrence: None)
  Receive Date: 20050112
  Receipt Date: 20050104
  Transmission Date: 20050727
  Serious: Yes (Hospitalization)
  Sender: FDA-Public Use
  Company Number: PHBS2005CA00548

PATIENT
  Sex: Female

DRUGS (5)
  1. RANITIDINE [Concomitant]
  2. AMITRIPTYLINE [Concomitant]
  3. PERSANTINE [Concomitant]
  4. PINAVERIUM [Concomitant]
  5. DIOVAN [Suspect]
     Dosage: 80 MG, QD
     Route: 048

REACTIONS (2)
  - HYPERTENSION [None]
  - MYOCARDIAL INFARCTION [None]
